FAERS Safety Report 14349891 (Version 1)
Quarter: 2018Q1

REPORT INFORMATION
  Report Type: Spontaneous
  Country: US (occurrence: US)
  Receive Date: 20180103
  Receipt Date: 20180103
  Transmission Date: 20180509
  Serious: Yes (Other)
  Sender: FDA-Public Use
  Company Number: None

PATIENT
  Age: 59 Year
  Sex: Female
  Weight: 69.75 kg

DRUGS (1)
  1. DULOXETINE. [Suspect]
     Active Substance: DULOXETINE
     Indication: FIBROMYALGIA

REACTIONS (8)
  - Nausea [None]
  - Nightmare [None]
  - Paraesthesia [None]
  - Dizziness [None]
  - Vomiting [None]
  - Vertigo [None]
  - Impaired work ability [None]
  - Impaired driving ability [None]

NARRATIVE: CASE EVENT DATE: 20171231
